FAERS Safety Report 9890858 (Version 2)
Quarter: 2014Q1

REPORT INFORMATION
  Report Type: Spontaneous
  Country: ES (occurrence: ES)
  Receive Date: 20140212
  Receipt Date: 20140321
  Transmission Date: 20141002
  Serious: Yes (Hospitalization)
  Sender: FDA-Public Use
  Company Number: ES-NOVOPROD-399441

PATIENT
  Age: 69 Year
  Sex: Female

DRUGS (12)
  1. VICTOZA [Suspect]
     Indication: DIABETES MELLITUS
     Dosage: 1.2 MG, QD
     Route: 058
     Dates: start: 201312, end: 20140122
  2. CIPROFLOXACIN [Concomitant]
     Indication: DIABETIC FOOT
     Dosage: 1000 MG
     Route: 048
     Dates: start: 20140110, end: 20140122
  3. REQUIP [Concomitant]
     Dosage: 1 MG
     Route: 048
     Dates: end: 20140122
  4. EMCONCOR [Concomitant]
  5. CARDURAN NEO [Concomitant]
  6. ELECOR [Concomitant]
  7. MICARDIS [Concomitant]
  8. ADIRO [Concomitant]
  9. DERMATRANS                         /00003201/ [Concomitant]
  10. LANTUS [Concomitant]
  11. PRANDIN                            /00882701/ [Concomitant]
  12. OMEPRAZOLE [Concomitant]

REACTIONS (1)
  - Hepatitis cholestatic [Not Recovered/Not Resolved]
